FAERS Safety Report 20628870 (Version 1)
Quarter: 2022Q1

REPORT INFORMATION
  Report Type: Spontaneous
  Country: US (occurrence: None)
  Receive Date: 20220323
  Receipt Date: 20220323
  Transmission Date: 20220423
  Serious: Yes (Hospitalization)
  Sender: FDA-Public Use
  Company Number: None

PATIENT
  Age: 77 Year
  Sex: Female

DRUGS (1)
  1. GLEEVEC [Suspect]
     Active Substance: IMATINIB MESYLATE
     Indication: Soft tissue sarcoma
     Dosage: FREQUENCY : DAILY;?
     Route: 048
     Dates: start: 20150630

REACTIONS (3)
  - Myocardial necrosis marker increased [None]
  - Urinary tract infection [None]
  - Sinusitis [None]

NARRATIVE: CASE EVENT DATE: 20220315
